FAERS Safety Report 16656271 (Version 1)
Quarter: 2019Q3

REPORT INFORMATION
  Report Type: Spontaneous
  Country: US (occurrence: US)
  Receive Date: 20190801
  Receipt Date: 20190801
  Transmission Date: 20191004
  Serious: No
  Sender: FDA-Public Use
  Company Number: US-VERTEX PHARMACEUTICALS-2019-007060

PATIENT

DRUGS (1)
  1. SYMDEKO [Suspect]
     Active Substance: IVACAFTOR\TEZACAFTOR
     Indication: CYSTIC FIBROSIS
     Dosage: 2 PILLS A DAY
     Route: 048
     Dates: start: 2018

REACTIONS (1)
  - Productive cough [Recovering/Resolving]

NARRATIVE: CASE EVENT DATE: 2018
